FAERS Safety Report 23284783 (Version 1)
Quarter: 2023Q4

REPORT INFORMATION
  Report Type: Spontaneous
  Country: US (occurrence: US)
  Receive Date: 20231211
  Receipt Date: 20231211
  Transmission Date: 20240109
  Serious: No
  Sender: FDA-Public Use
  Company Number: US-PERRIGO-22US016775

PATIENT
  Age: 90 Year
  Sex: Female
  Weight: 81.633 kg

DRUGS (6)
  1. GUAIFENESIN [Suspect]
     Active Substance: GUAIFENESIN
     Indication: Cough
     Dosage: 600 MG, TWICE (12 HRS APART)
     Route: 048
     Dates: start: 20221228, end: 20221228
  2. GUAIFENESIN [Suspect]
     Active Substance: GUAIFENESIN
     Dosage: 600 MG, SINGLE
     Route: 048
     Dates: start: 20221227, end: 20221227
  3. DELSYM [Suspect]
     Active Substance: DEXTROMETHORPHAN
     Indication: Cough
     Dosage: 2 TSP, TWICE (12 HRS APART)
     Route: 048
     Dates: start: 20221228, end: 20221228
  4. METOPROLOL TARTRATE [Concomitant]
     Active Substance: METOPROLOL TARTRATE
     Indication: Hypertension
     Dosage: UNK
     Route: 065
     Dates: start: 2012
  5. ATORVASTATIN [Concomitant]
     Active Substance: ATORVASTATIN
     Indication: Blood cholesterol
     Dosage: UNK
     Route: 065
     Dates: start: 2012
  6. ASPIRIN [Concomitant]
     Active Substance: ASPIRIN
     Indication: Prophylaxis
     Dosage: UNK
     Route: 065
     Dates: start: 2012

REACTIONS (1)
  - Diarrhoea [Recovered/Resolved]

NARRATIVE: CASE EVENT DATE: 20221229
